FAERS Safety Report 12239087 (Version 2)
Quarter: 2016Q2

REPORT INFORMATION
  Report Type: Spontaneous
  Country: BR (occurrence: BR)
  Receive Date: 20160405
  Receipt Date: 20160523
  Transmission Date: 20160815
  Serious: No
  Sender: FDA-Public Use
  Company Number: BR-B.I. PHARMACEUTICALS,INC./RIDGEFIELD-2016-BI-20489BR

PATIENT
  Age: 60 Year
  Sex: Female
  Weight: 66 kg

DRUGS (9)
  1. SPIRIVA RESPIMAT [Suspect]
     Active Substance: TIOTROPIUM BROMIDE
     Indication: EMPHYSEMA
     Dosage: 5 MCG
     Route: 055
     Dates: start: 2014, end: 201604
  2. BEROTEC [Suspect]
     Active Substance: FENOTEROL HYDROBROMIDE
     Indication: EMPHYSEMA
     Dosage: STRENGTH: 5MG/ML; DOSE PER APPLICATION: 9 DROPS
     Route: 055
     Dates: start: 2008
  3. ALENIA [Concomitant]
     Active Substance: BUDESONIDE\FORMOTEROL FUMARATE
     Indication: EMPHYSEMA
     Dosage: DOSE PER APPLICATION: 12/400 MG; DAILY DOSE:24/800 MG
     Route: 055
     Dates: start: 2011
  4. MONTELAIR [Concomitant]
     Active Substance: MONTELUKAST SODIUM
     Indication: EMPHYSEMA
     Dosage: 10 MG
     Route: 048
     Dates: start: 2015
  5. ATROVENT [Suspect]
     Active Substance: IPRATROPIUM BROMIDE
     Indication: EMPHYSEMA
     Dosage: STRENGTH: 0.025 %; DOSE PER APPLICATION: 20 DROPS
     Route: 055
     Dates: start: 2008
  6. AMINOPHYLLINE. [Concomitant]
     Active Substance: AMINOPHYLLINE
     Indication: EMPHYSEMA
     Dosage: 400 MG
     Route: 048
     Dates: start: 2011
  7. PREDNISONE. [Concomitant]
     Active Substance: PREDNISONE
     Indication: EMPHYSEMA
     Dosage: 0.5 ANZ
     Route: 065
     Dates: start: 2011
  8. SALBUTAMOL SULPHATE [Concomitant]
     Active Substance: ALBUTEROL SULFATE
     Indication: EMPHYSEMA
     Route: 055
     Dates: start: 2011
  9. PREDNISONE. [Concomitant]
     Active Substance: PREDNISONE
     Dosage: 1 ANZ
     Route: 065
     Dates: start: 2011

REACTIONS (3)
  - Syncope [Recovered/Resolved]
  - Dyspnoea [Not Recovered/Not Resolved]
  - Bronchitis [Not Recovered/Not Resolved]
